FAERS Safety Report 9241911 (Version 1)
Quarter: 2013Q2

REPORT INFORMATION
  Report Type: Other
  Country: US (occurrence: US)
  Receive Date: 20130419
  Receipt Date: 20130419
  Transmission Date: 20140414
  Serious: Yes (Other)
  Sender: FDA-Public Use
  Company Number: US-BRISTOL-MYERS SQUIBB COMPANY-18764258

PATIENT
  Age: 54 Year
  Sex: Female

DRUGS (2)
  1. CARBOPLATIN [Suspect]
     Indication: OVARIAN CANCER
  2. PACLITAXEL [Suspect]
     Indication: OVARIAN CANCER

REACTIONS (2)
  - Colitis [Recovering/Resolving]
  - Weight decreased [Recovering/Resolving]
